FAERS Safety Report 21417057 (Version 1)
Quarter: 2022Q4

REPORT INFORMATION
  Report Type: Spontaneous
  Country: US (occurrence: US)
  Receive Date: 20221006
  Receipt Date: 20221006
  Transmission Date: 20230112
  Serious: No
  Sender: FDA-Public Use
  Company Number: US-PFIZER INC-202201205566

PATIENT
  Age: 67 Year
  Sex: Female
  Weight: 74.39 kg

DRUGS (1)
  1. PAXLOVID [Suspect]
     Active Substance: NIRMATRELVIR\RITONAVIR
     Indication: COVID-19
     Dosage: 3 TABLETS TWICE A DAY AS DIRECTED, STANDARD DOSE PACK
     Dates: start: 20220928, end: 20221003

REACTIONS (5)
  - Diarrhoea [Unknown]
  - Dysgeusia [Unknown]
  - Product taste abnormal [Unknown]
  - Malaise [Unknown]
  - Therapeutic response unexpected [Unknown]
